FAERS Safety Report 6509797-8 (Version None)
Quarter: 2009Q4

REPORT INFORMATION
  Report Type: 
  Country: None (occurrence: None)
  Receive Date: 20091222
  Receipt Date: 20091210
  Transmission Date: 20100525
  Serious: Yes (Other)
  Sender: FDA-Public Use
  Company Number: US-AMGEN-QUU380015

PATIENT
  Sex: Female

DRUGS (2)
  1. ENBREL [Suspect]
     Indication: PSORIATIC ARTHROPATHY
     Route: 058
  2. DIABETIC MEDICATION NOS [Concomitant]

REACTIONS (8)
  - ARTHRITIS [None]
  - DIABETES MELLITUS [None]
  - FATIGUE [None]
  - JOINT INJURY [None]
  - MEMORY IMPAIRMENT [None]
  - OSTEOPOROSIS [None]
  - THYROID DISORDER [None]
  - WEIGHT INCREASED [None]
